FAERS Safety Report 10373861 (Version 1)
Quarter: 2014Q1

REPORT INFORMATION
  Report Type: Spontaneous
  Country: US (occurrence: None)
  Receive Date: 20140306
  Receipt Date: 20140306
  Transmission Date: 20141002
  Serious: Yes (Hospitalization, Other)
  Sender: FDA-Public Use
  Company Number: 163-21880-13105677

PATIENT
  Age: 78 Year
  Sex: Male

DRUGS (1)
  1. REVLIMID [Suspect]
     Indication: MANTLE CELL LYMPHOMA
     Dosage: 20 MG, 21 IN 28 D, PO
     Route: 048
     Dates: start: 20130930

REACTIONS (3)
  - Pneumonia [None]
  - Increased tendency to bruise [None]
  - Constipation [None]
